FAERS Safety Report 12826080 (Version 2)
Quarter: 2016Q4

REPORT INFORMATION
  Report Type: Spontaneous
  Country: US (occurrence: US)
  Receive Date: 20161006
  Receipt Date: 20161208
  Transmission Date: 20170207
  Serious: No
  Sender: FDA-Public Use
  Company Number: US-JAZZ-2016-US-012589

PATIENT
  Sex: Female

DRUGS (29)
  1. MORPHINE [Concomitant]
     Active Substance: MORPHINE
  2. XARELTO [Concomitant]
     Active Substance: RIVAROXABAN
  3. DIGOXIN. [Concomitant]
     Active Substance: DIGOXIN
  4. METFORMIN HCL [Concomitant]
     Active Substance: METFORMIN HYDROCHLORIDE
  5. VITAMIN D [Concomitant]
     Active Substance: CHOLECALCIFEROL
  6. XYREM [Suspect]
     Active Substance: SODIUM OXYBATE
     Indication: CATAPLEXY
     Dosage: DOSE ADJUSTMENTS
     Route: 048
     Dates: start: 201605, end: 201606
  7. POLYETHYLENE GLYCOL [Concomitant]
     Active Substance: POLYETHYLENE GLYCOLS
  8. MONTELUKAST SODIUM. [Concomitant]
     Active Substance: MONTELUKAST SODIUM
  9. XYREM [Suspect]
     Active Substance: SODIUM OXYBATE
     Dosage: 4.5 G, BID
     Route: 048
     Dates: start: 201606
  10. COLCRYS [Concomitant]
     Active Substance: COLCHICINE
  11. LISINOPRIL. [Concomitant]
     Active Substance: LISINOPRIL
  12. XYREM [Suspect]
     Active Substance: SODIUM OXYBATE
     Indication: NARCOLEPSY
     Dosage: 2.25 G, BID
     Route: 048
     Dates: start: 201605, end: 201605
  13. NUVIGIL [Concomitant]
     Active Substance: ARMODAFINIL
  14. LORAZEPAM. [Concomitant]
     Active Substance: LORAZEPAM
  15. GILDESS FE [Concomitant]
     Active Substance: ETHINYL ESTRADIOL\NORETHINDRONE
  16. CALCIUM CARBONATE. [Concomitant]
     Active Substance: CALCIUM CARBONATE
  17. METOPROLOL SUCCINATE. [Concomitant]
     Active Substance: METOPROLOL SUCCINATE
  18. SPIRONOLACTONE. [Concomitant]
     Active Substance: SPIRONOLACTONE
  19. VICTOZA [Concomitant]
     Active Substance: LIRAGLUTIDE
  20. GLUCOSAMINE RELIEF [Concomitant]
  21. DEXTROAMPHETAMINE. [Concomitant]
     Active Substance: DEXTROAMPHETAMINE
  22. PREDNISONE. [Concomitant]
     Active Substance: PREDNISONE
  23. OXYCONTIN [Concomitant]
     Active Substance: OXYCODONE HYDROCHLORIDE
  24. ONDANSETRON HCL [Concomitant]
     Active Substance: ONDANSETRON HYDROCHLORIDE
  25. OTEZLA [Concomitant]
     Active Substance: APREMILAST
  26. ALLOPURINOL. [Concomitant]
     Active Substance: ALLOPURINOL
  27. TORSEMIDE. [Concomitant]
     Active Substance: TORSEMIDE
  28. CYCLOBENZAPRINE [Concomitant]
     Active Substance: CYCLOBENZAPRINE
  29. CHONDROITIN SULFATE [Concomitant]
     Active Substance: SODIUM CHONDROITIN SULFATE

REACTIONS (6)
  - Somnolence [Not Recovered/Not Resolved]
  - Pre-existing condition improved [Unknown]
  - Hyperhidrosis [Not Recovered/Not Resolved]
  - Nausea [Not Recovered/Not Resolved]
  - Dizziness [Not Recovered/Not Resolved]
  - Therapeutic response unexpected [Unknown]

NARRATIVE: CASE EVENT DATE: 2016
